FAERS Safety Report 5216925-3 (Version None)
Quarter: 2007Q1

REPORT INFORMATION
  Report Type: 
  Country: None (occurrence: None)
  Receive Date: 20070119
  Receipt Date: 20070103
  Transmission Date: 20070707
  Serious: Yes (Hospitalization)
  Sender: FDA-Public Use
  Company Number: 2007VX000037

PATIENT
  Age: 55 Year
  Sex: Male

DRUGS (4)
  1. PERMAX [Suspect]
     Dosage: 2000 UG;QID;PO
     Route: 048
  2. DOPS [Concomitant]
  3. MADOPAR [Concomitant]
  4. LEVODOPA [Concomitant]

REACTIONS (2)
  - GASTROINTESTINAL HAEMORRHAGE [None]
  - INAPPROPRIATE SCHEDULE OF DRUG ADMINISTRATION [None]
